FAERS Safety Report 9357483 (Version 1)
Quarter: 2013Q2

REPORT INFORMATION
  Report Type: Spontaneous
  Country: DE (occurrence: None)
  Receive Date: 20130617
  Receipt Date: 20130617
  Transmission Date: 20140414
  Serious: Yes (Other)
  Sender: FDA-Public Use
  Company Number: VAL_02264_2013

PATIENT
  Age: 50 Year
  Sex: Male

DRUGS (10)
  1. ROCALTROL [Suspect]
     Indication: RENAL TRANSPLANT
     Dosage: (DF)
     Dates: start: 201301
  2. CELLCEPT [Suspect]
     Indication: RENAL TRANSPLANT
     Route: 048
     Dates: start: 20130124
  3. AMLODIPIN [Suspect]
     Indication: PRODUCT USED FOR UNKNOWN INDICATION
     Route: 048
     Dates: start: 20130124, end: 20130315
  4. COTRIMOXAZOLE [Suspect]
     Indication: ANTIFUNGAL PROPHYLAXIS
     Route: 048
     Dates: start: 20130201, end: 20130315
  5. KEPINOL [Concomitant]
  6. PANTOPRAZOL [Concomitant]
  7. PROGRAF [Concomitant]
  8. CALCITRIOL [Concomitant]
  9. VALCYTE [Concomitant]
  10. PENTAMIDINE [Concomitant]

REACTIONS (1)
  - Leukopenia [None]
